FAERS Safety Report 5121930-1 (Version None)
Quarter: 2006Q4

REPORT INFORMATION
  Report Type: 
  Country: None (occurrence: None)
  Receive Date: 20061006
  Receipt Date: 20060928
  Transmission Date: 20070319
  Serious: Yes (Hospitalization)
  Sender: FDA-Public Use
  Company Number: 2006UW18937

PATIENT
  Age: 42 Year
  Sex: Male

DRUGS (4)
  1. SEROQUEL [Suspect]
     Indication: SCHIZOPHRENIA
     Route: 048
  2. RISPERDAL [Concomitant]
  3. WELLBUTRIN [Concomitant]
  4. KLONOPIN [Concomitant]

REACTIONS (4)
  - CONSTIPATION [None]
  - FATIGUE [None]
  - NEPHROLITHIASIS [None]
  - THINKING ABNORMAL [None]
